FAERS Safety Report 6202102-6 (Version None)
Quarter: 2009Q2

REPORT INFORMATION
  Report Type: 
  Country: None (occurrence: None)
  Receive Date: 20090520
  Receipt Date: 20090508
  Transmission Date: 20091009
  Serious: Yes (Death, Hospitalization)
  Sender: FDA-Public Use
  Company Number: 2009AL002902

PATIENT
  Age: 56 Year
  Sex: Male

DRUGS (6)
  1. OXYCODONE HCL [Suspect]
     Indication: PAIN
     Dosage: 15 MG; Q4H; PO
     Route: 048
  2. MORPHINE [Concomitant]
  3. CONTROLLED RELEASE [Concomitant]
  4. OXYCODONE [Concomitant]
  5. IBUPROFEN [Concomitant]
  6. DAXAMETHASONE [Concomitant]

REACTIONS (15)
  - ASTHENIA [None]
  - BACK PAIN [None]
  - BONE PAIN [None]
  - CHEST PAIN [None]
  - CONDITION AGGRAVATED [None]
  - FATIGUE [None]
  - HYPERAESTHESIA [None]
  - MALIGNANT NEOPLASM PROGRESSION [None]
  - METASTASES TO SPINE [None]
  - NAUSEA [None]
  - NO THERAPEUTIC RESPONSE [None]
  - PAIN [None]
  - SEDATION [None]
  - SOMNOLENCE [None]
  - VOMITING [None]
